FAERS Safety Report 7227325-9 (Version None)
Quarter: 2011Q1

REPORT INFORMATION
  Report Type: 
  Country: None (occurrence: None)
  Receive Date: 20110114
  Receipt Date: 20110107
  Transmission Date: 20110831
  Serious: Yes (Hospitalization)
  Sender: FDA-Public Use
  Company Number: Z0007108A

PATIENT
  Age: 69 Year
  Sex: Male
  Weight: 155 kg

DRUGS (7)
  1. HYDROCHLOROTHIAZIDE [Concomitant]
     Indication: PNEUMONIA
     Dosage: 6.25MG PER DAY
     Route: 048
     Dates: start: 20101221, end: 20101223
  2. INFLUENZA VACCINE [Concomitant]
     Dosage: .5MG SINGLE DOSE
     Route: 030
     Dates: start: 20101221, end: 20101221
  3. GLUCOPHAGE [Concomitant]
     Indication: BLOOD GLUCOSE ABNORMAL
     Dosage: 500MG TWICE PER DAY
     Route: 048
     Dates: start: 20101222, end: 20101223
  4. LOVENOX [Concomitant]
     Indication: DEEP VEIN THROMBOSIS
     Dosage: 40MG PER DAY
     Route: 058
     Dates: start: 20101221, end: 20101223
  5. NOVOLOG [Concomitant]
     Indication: BLOOD GLUCOSE ABNORMAL
     Dosage: 2UNIT FOUR TIMES PER DAY
     Route: 058
     Dates: start: 20101221, end: 20101223
  6. ADVAIR [Suspect]
     Indication: CHRONIC OBSTRUCTIVE PULMONARY DISEASE
     Route: 055
     Dates: start: 20100915, end: 20101014
  7. GW685698 + GW642444 INHALATION POWDER [Suspect]
     Indication: CHRONIC OBSTRUCTIVE PULMONARY DISEASE
     Route: 055
     Dates: start: 20101014, end: 20110104

REACTIONS (2)
  - PNEUMONIA [None]
  - CHRONIC OBSTRUCTIVE PULMONARY DISEASE [None]
